FAERS Safety Report 13444431 (Version 2)
Quarter: 2017Q2

REPORT INFORMATION
  Report Type: Report from Study
  Country: GB (occurrence: GB)
  Receive Date: 20170414
  Receipt Date: 20170502
  Transmission Date: 20170830
  Serious: Yes (Hospitalization, Disabling)
  Sender: FDA-Public Use
  Company Number: GB-GILEAD-2017-0262235

PATIENT
  Age: 51 Year
  Sex: Male
  Weight: 78.2 kg

DRUGS (4)
  1. EFAVIRENZ/EMTRICITABINE/TENOFOVIR DISOPROXIL FUMARATE [Suspect]
     Active Substance: EFAVIRENZ\EMTRICITABINE\TENOFOVIR DISOPROXIL FUMARATE
     Indication: HIV INFECTION
     Dosage: 1 DF, QD
     Route: 048
     Dates: start: 20121030
  2. WARFARIN [Concomitant]
     Active Substance: WARFARIN
  3. DESMOPRESSIN [Concomitant]
     Active Substance: DESMOPRESSIN
  4. BISOPROLOL [Concomitant]
     Active Substance: BISOPROLOL

REACTIONS (1)
  - Ankle fracture [Not Recovered/Not Resolved]

NARRATIVE: CASE EVENT DATE: 20170227
